FAERS Safety Report 21298044 (Version 1)
Quarter: 2022Q3

REPORT INFORMATION
  Report Type: Spontaneous
  Country: US (occurrence: None)
  Receive Date: 20220902
  Receipt Date: 20220902
  Transmission Date: 20221026
  Serious: Yes (Other)
  Sender: FDA-Public Use
  Company Number: None

PATIENT
  Age: 65 Year
  Sex: Female

DRUGS (16)
  1. AMBRISENTAN [Suspect]
     Active Substance: AMBRISENTAN
     Indication: Portopulmonary hypertension
     Dosage: FREQUENCY : DAILY;?
     Route: 048
     Dates: start: 20140827
  2. SILDENAFIL CITRATE [Suspect]
     Active Substance: SILDENAFIL CITRATE
  3. OMEPRAZOLE [Concomitant]
     Active Substance: OMEPRAZOLE
  4. FOLIC ACID [Concomitant]
     Active Substance: FOLIC ACID
  5. PHENYTOIN [Concomitant]
     Active Substance: PHENYTOIN
  6. LOSARTAN [Concomitant]
     Active Substance: LOSARTAN
  7. POTASSIUM CHLORIDE [Concomitant]
     Active Substance: POTASSIUM CHLORIDE
  8. LASIX [Concomitant]
     Active Substance: FUROSEMIDE
  9. LEVOTHYROXINE [Concomitant]
     Active Substance: LEVOTHYROXINE
  10. Xifaxxan [Concomitant]
  11. URSODIOL [Concomitant]
     Active Substance: URSODIOL
  12. LACTULOSE [Concomitant]
     Active Substance: LACTULOSE
  13. ATORVASTATIN [Concomitant]
     Active Substance: ATORVASTATIN
  14. CALCIUM\VITAMIN D [Concomitant]
     Active Substance: CALCIUM\VITAMIN D
  15. EPOGEN [Concomitant]
     Active Substance: ERYTHROPOIETIN
  16. IRON SUCROSE [Concomitant]
     Active Substance: IRON SUCROSE

REACTIONS (2)
  - Nausea [None]
  - Atrial fibrillation [None]

NARRATIVE: CASE EVENT DATE: 20220209
